FAERS Safety Report 5029896-X (Version None)
Quarter: 2006Q2

REPORT INFORMATION
  Report Type: 
  Country: None (occurrence: None)
  Receive Date: 20060620
  Receipt Date: 20060410
  Transmission Date: 20061013
  Serious: Yes (Hospitalization, Disabling, Other)
  Sender: FDA-Public Use
  Company Number: US-BRISTOL-MYERS SQUIBB COMPANY-13342837

PATIENT
  Age: 15 Year
  Sex: Male

DRUGS (4)
  1. PARAPLATIN [Suspect]
     Indication: PINEAL GERMINOMA
     Route: 042
     Dates: start: 20060324, end: 20060325
  2. ETOPOSIDE [Concomitant]
     Dates: start: 20060324, end: 20060325
  3. DEXAMETHASONE TAB [Concomitant]
     Dates: start: 20060324, end: 20060325
  4. DESMOPRESSIN [Concomitant]

REACTIONS (1)
  - CENTRAL PONTINE MYELINOLYSIS [None]
